FAERS Safety Report 5518115-3 (Version None)
Quarter: 2007Q4

REPORT INFORMATION
  Report Type: 
  Country: None (occurrence: None)
  Receive Date: 20071113
  Receipt Date: 20071113
  Transmission Date: 20080405
  Serious: Yes (Hospitalization)
  Sender: FDA-Public Use
  Company Number: None

PATIENT
  Age: 37 Year
  Sex: Female
  Weight: 61 kg

DRUGS (2)
  1. CETUXIMAB 250MG/M2 [Suspect]
     Indication: BREAST CANCER METASTATIC
     Dosage: 432MG 8 WEEK IV
     Route: 042
     Dates: start: 20070914, end: 20071102
  2. CARBOPLATIN [Suspect]
     Indication: BREAST CANCER METASTATIC
     Dosage: 325MG QWK X 3 IV
     Route: 042
     Dates: start: 20070914, end: 20071026

REACTIONS (2)
  - DIASTOLIC DYSFUNCTION [None]
  - PERICARDIAL EFFUSION [None]
